FAERS Safety Report 11656301 (Version 5)
Quarter: 2017Q1

REPORT INFORMATION
  Report Type: Report from Study
  Country: US (occurrence: US)
  Receive Date: 20151023
  Receipt Date: 20170223
  Transmission Date: 20170428
  Serious: Yes (Hospitalization)
  Sender: FDA-Public Use
  Company Number: US-EISAI MEDICAL RESEARCH-EC-2015-010748

PATIENT
  Age: 77 Year
  Sex: Male
  Weight: 75 kg

DRUGS (22)
  1. SYNTHROID [Concomitant]
     Active Substance: LEVOTHYROXINE SODIUM
  2. PLAQUENIL [Concomitant]
     Active Substance: HYDROXYCHLOROQUINE SULFATE
  3. NEXAVAR [Concomitant]
     Active Substance: SORAFENIB
  4. VITAMIN C [Concomitant]
     Active Substance: ASCORBIC ACID
  5. LIPITOR [Concomitant]
     Active Substance: ATORVASTATIN CALCIUM
  6. LISINOPRIL. [Concomitant]
     Active Substance: LISINOPRIL
  7. LOMOTIL [Concomitant]
     Active Substance: ATROPINE SULFATE\DIPHENOXYLATE HYDROCHLORIDE
  8. LENVIMA [Suspect]
     Active Substance: LENVATINIB
     Indication: THYROID CANCER
     Route: 048
     Dates: start: 20150910, end: 2015
  9. TOVIAZ [Concomitant]
     Active Substance: FESOTERODINE FUMARATE
  10. FLOMAX [Concomitant]
     Active Substance: TAMSULOSIN HYDROCHLORIDE
  11. VITAMIN B12 [Concomitant]
     Active Substance: CYANOCOBALAMIN
  12. IMODIUM [Concomitant]
     Active Substance: LOPERAMIDE HYDROCHLORIDE
  13. PROLIXIN [Concomitant]
     Active Substance: FLUPHENAZINE HYDROCHLORIDE
  14. CALCIUM CARBONATE-MAGNESIUM CHLORIDE [Concomitant]
  15. LENVIMA [Suspect]
     Active Substance: LENVATINIB
     Route: 048
     Dates: start: 20151008, end: 201602
  16. LENVIMA [Suspect]
     Active Substance: LENVATINIB
     Route: 048
     Dates: start: 201610, end: 201702
  17. LOPERAMIDE [Concomitant]
     Active Substance: LOPERAMIDE
  18. NORTRYPTYLINE [Concomitant]
  19. MULTIVITAMIN [Concomitant]
     Active Substance: VITAMINS
  20. VITAMIN D3 [Concomitant]
     Active Substance: CHOLECALCIFEROL
  21. MELATONIN [Concomitant]
     Active Substance: MELATONIN
  22. MEGESTROL [Concomitant]
     Active Substance: MEGESTROL

REACTIONS (13)
  - Blood pressure fluctuation [Unknown]
  - Dehydration [Recovering/Resolving]
  - Fall [Unknown]
  - Blood potassium decreased [Recovered/Resolved]
  - Heart rate irregular [Unknown]
  - Fatigue [Unknown]
  - Asthenia [Unknown]
  - Diarrhoea [Recovering/Resolving]
  - Blood pressure increased [Not Recovered/Not Resolved]
  - Colitis [Unknown]
  - Blood magnesium decreased [Recovered/Resolved]
  - Decreased appetite [Recovering/Resolving]
  - Renal impairment [Unknown]

NARRATIVE: CASE EVENT DATE: 2015
